FAERS Safety Report 6761185-5 (Version None)
Quarter: 2010Q2

REPORT INFORMATION
  Report Type: 
  Country: None (occurrence: None)
  Receive Date: 20100602
  Receipt Date: 20071228
  Transmission Date: 20101027
  Serious: No
  Sender: FDA-Public Use
  Company Number: 2007-00015

PATIENT
  Age: 65 Year
  Sex: Male
  Weight: 87.5442 kg

DRUGS (5)
  1. ZICAM COLD REMEDY NASAL GEL [Suspect]
  2. NAPROSYN [Concomitant]
  3. BYETTA [Concomitant]
  4. LORTAB [Concomitant]
  5. LISINOPRIL [Concomitant]

REACTIONS (3)
  - AGEUSIA [None]
  - ANOSMIA [None]
  - BURNING SENSATION [None]
